FAERS Safety Report 6993583-9 (Version None)
Quarter: 2010Q3

REPORT INFORMATION
  Report Type: 
  Country: None (occurrence: None)
  Receive Date: 20100917
  Receipt Date: 20100908
  Transmission Date: 20110219
  Serious: Yes (Other)
  Sender: FDA-Public Use
  Company Number: PHHY2010DE60851

PATIENT
  Age: 55 Year
  Sex: Female

DRUGS (2)
  1. ZOMETA [Suspect]
     Indication: BREAST CANCER
     Dosage: UNK, EVERY 4 WEEKS
     Route: 042
  2. AROMASIN [Concomitant]
     Dosage: UNK

REACTIONS (3)
  - BRONCHITIS [None]
  - COUGH [None]
  - DYSPNOEA [None]
